FAERS Safety Report 7763118-1 (Version None)
Quarter: 2011Q3

REPORT INFORMATION
  Report Type: 
  Country: None (occurrence: None)
  Receive Date: 20110920
  Receipt Date: 20110908
  Transmission Date: 20111222
  Serious: Yes (Other)
  Sender: FDA-Public Use
  Company Number: PHHY2011DE65717

PATIENT
  Sex: Male
  Weight: 104 kg

DRUGS (7)
  1. TORSEMIDE [Concomitant]
     Indication: CARDIAC FAILURE
     Dosage: 30 MG, QD
     Route: 048
  2. TORSEMIDE [Concomitant]
     Indication: HYPERTENSION
  3. TASIGNA [Suspect]
     Indication: CHRONIC MYELOID LEUKAEMIA
     Dosage: 300 MG, BID
     Route: 048
     Dates: start: 20110124, end: 20110222
  4. OMEPRAZOLE [Concomitant]
     Indication: GASTRIC ULCER
     Dosage: 20 MG, QD
     Route: 048
  5. ALLOPURINOL [Concomitant]
     Indication: HYPERURICAEMIA
     Dosage: 100 MG, QD
     Route: 048
     Dates: end: 20110801
  6. SIMVASTATIN [Concomitant]
     Indication: HYPERLIPIDAEMIA
     Dosage: 40 MG, QD
     Route: 048
  7. GLEEVEC [Concomitant]
     Indication: CHRONIC MYELOID LEUKAEMIA
     Dosage: 400 MG, QD
     Route: 048
     Dates: start: 20051205, end: 20110704

REACTIONS (10)
  - RASH [None]
  - HEADACHE [None]
  - TREMOR [None]
  - NAUSEA [None]
  - MUSCLE TWITCHING [None]
  - PRURITUS [None]
  - FATIGUE [None]
  - ARTHRALGIA [None]
  - DYSPNOEA [None]
  - MYALGIA [None]
